FAERS Safety Report 7358645-5 (Version None)
Quarter: 2011Q1

REPORT INFORMATION
  Report Type: 
  Country: None (occurrence: None)
  Receive Date: 20110317
  Receipt Date: 20110304
  Transmission Date: 20110831
  Serious: Yes (Other)
  Sender: FDA-Public Use
  Company Number: PHHY2011GB11527

PATIENT
  Age: 72 Year
  Sex: Male

DRUGS (4)
  1. OMEPRAZOLE [Concomitant]
     Dosage: 20 MG, QD
  2. VFEND [Suspect]
     Dosage: 200 MG, UNK
  3. ITRACONAZOLE [Suspect]
     Dosage: 100 MG, BID
  4. MEROPENEM [Concomitant]
     Dosage: 1 G, BID
     Route: 042

REACTIONS (5)
  - HALLUCINATION [None]
  - CONFUSIONAL STATE [None]
  - FUNGAL INFECTION [None]
  - AGITATION [None]
  - DRUG INEFFECTIVE [None]
